FAERS Safety Report 9615479 (Version 1)
Quarter: 2013Q4

REPORT INFORMATION
  Report Type: Spontaneous
  Country: US (occurrence: US)
  Receive Date: 20131011
  Receipt Date: 20131011
  Transmission Date: 20140711
  Serious: Yes (Other)
  Sender: FDA-Public Use
  Company Number: US-JNJFOC-20131001709

PATIENT
  Age: 65 Year
  Sex: Male
  Weight: 103.42 kg

DRUGS (3)
  1. XARELTO [Suspect]
     Indication: CEREBROVASCULAR ACCIDENT PROPHYLAXIS
     Dosage: DAILY EVENING MEAL
     Route: 048
  2. XARELTO [Suspect]
     Indication: ATRIAL FIBRILLATION
     Dosage: DAILY EVENING MEAL
     Route: 048
  3. AMIODARONE [Suspect]
     Indication: ATRIAL FIBRILLATION
     Route: 065
     Dates: end: 201301

REACTIONS (7)
  - Gingival bleeding [Not Recovered/Not Resolved]
  - Thyroid function test abnormal [Recovered/Resolved]
  - Malaise [Recovered/Resolved]
  - Abnormal loss of weight [Not Recovered/Not Resolved]
  - Tooth fracture [Not Recovered/Not Resolved]
  - Adverse event [Unknown]
  - Dizziness [Recovered/Resolved]
